FAERS Safety Report 24550823 (Version 3)
Quarter: 2024Q4

REPORT INFORMATION
  Report Type: Spontaneous
  Country: GR (occurrence: GR)
  Receive Date: 20241025
  Receipt Date: 20241112
  Transmission Date: 20250114
  Serious: Yes (Death, Other)
  Sender: SANDOZ
  Company Number: None

PATIENT
  Age: 34 Year
  Sex: Female
  Weight: 53 kg

DRUGS (18)
  1. ARANESP [Suspect]
     Active Substance: DARBEPOETIN ALFA
     Indication: Product used for unknown indication
     Dosage: 150 UNK, QWK
     Route: 065
  2. DOXORUBICIN HYDROCHLORIDE [Suspect]
     Active Substance: DOXORUBICIN HYDROCHLORIDE
     Indication: Hodgkin^s disease
     Dosage: 55 MG DAY 1 INTRAVENOUSLY
     Route: 042
     Dates: start: 20140702
  3. ETOPOSIDE [Suspect]
     Active Substance: ETOPOSIDE
     Indication: Hodgkin^s disease
     Dosage: 300 MG, UNK
     Route: 042
     Dates: start: 20140702
  4. EMEND [Suspect]
     Active Substance: APREPITANT
     Indication: Prophylaxis of nausea and vomiting
     Dosage: 125-80-80 THE 3 FIRST DAYS OF EACH CYCLE
     Route: 048
     Dates: start: 20140702
  5. CYCLOPHOSPHAMIDE [Suspect]
     Active Substance: CYCLOPHOSPHAMIDE
     Indication: Hodgkin^s disease
     Dosage: 1950 MG, UNK
     Route: 042
     Dates: start: 20140702
  6. MESNA [Suspect]
     Active Substance: MESNA
     Indication: Product used for unknown indication
     Dosage: 800MG BEFORE ENDOXAN AND 800MG 4HOURS AFTER
     Route: 065
     Dates: start: 20140702
  7. MESNA [Suspect]
     Active Substance: MESNA
     Dosage: 800MG BEFORE ENDOXAN AND 800MG 4HOURS AFTER
     Route: 065
     Dates: start: 20140702
  8. PROCARBAZINE HYDROCHLORIDE [Suspect]
     Active Substance: PROCARBAZINE HYDROCHLORIDE
     Indication: Hodgkin^s disease
     Dosage: 50 MG, TID
     Route: 048
     Dates: start: 20140702
  9. ONDANSETRON [Suspect]
     Active Substance: ONDANSETRON
     Indication: Prophylaxis of nausea and vomiting
     Dosage: UNK
     Route: 065
  10. ONDANSETRON [Suspect]
     Active Substance: ONDANSETRON
     Dosage: UNK
     Route: 065
  11. ONDANSETRON HYDROCHLORIDE [Suspect]
     Active Substance: ONDANSETRON HYDROCHLORIDE
     Indication: Product used for unknown indication
     Dosage: UNK
     Route: 065
  12. PREDNISOLONE [Suspect]
     Active Substance: PREDNISOLONE
     Indication: Product used for unknown indication
     Dosage: 20MG 3 TIMES A DAY FOR DAYS1-14
     Route: 048
  13. PREDNISOLONE [Suspect]
     Active Substance: PREDNISOLONE
     Indication: Hodgkin^s disease
     Dosage: 20 MG, TID
     Route: 048
  14. FILGRASTIM [Suspect]
     Active Substance: FILGRASTIM
     Indication: White blood cell count decreased
     Dosage: ADMINISTERED ON 10/7 AND 12/7/2014, ACCORDING TO THE MOTHERSTART DATE 10-JUL-2014 AND STOP DATE 12-J
     Route: 065
  15. ONDANSETRON [Suspect]
     Active Substance: ONDANSETRON
     Indication: Prophylaxis of nausea and vomiting
     Dosage: 8MG WHEN HAVING NAUSEA AND UP TO 2 TABLETS PER DAY
     Route: 048
  16. ZANTAC [Concomitant]
     Active Substance: RANITIDINE HYDROCHLORIDE
     Indication: Product used for unknown indication
     Dosage: FOR THE DAYS CORTISONE IS ADMINISTERED
     Route: 065
     Dates: start: 20140702
  17. ALLOPURINOL [Concomitant]
     Active Substance: ALLOPURINOL
     Indication: Product used for unknown indication
     Dosage: CONTINUOUSLY
     Route: 065
     Dates: start: 20140702
  18. ALLOPURINOL [Concomitant]
     Active Substance: ALLOPURINOL
     Dosage: 3 MG, QD
     Route: 065
     Dates: start: 20140702

REACTIONS (9)
  - Myocardial ischaemia [Fatal]
  - Aspiration [Fatal]
  - Cardiac arrest [Fatal]
  - Pyrexia [Fatal]
  - Vomiting [Fatal]
  - Neutropenia [Fatal]
  - Tachycardia [Fatal]
  - Aspiration [Fatal]
  - Diarrhoea [Fatal]

NARRATIVE: CASE EVENT DATE: 20140709
